FAERS Safety Report 24628349 (Version 3)
Quarter: 2025Q3

REPORT INFORMATION
  Report Type: Spontaneous
  Country: MX (occurrence: MX)
  Receive Date: 20241117
  Receipt Date: 20250802
  Transmission Date: 20251020
  Serious: Yes (Other)
  Sender: ALEXION PHARMACEUTICALS
  Company Number: MX-ASTRAZENECA-202411MEX009051MX

PATIENT
  Age: 40 Year
  Sex: Female
  Weight: 57.5 kg

DRUGS (4)
  1. LYNPARZA [Suspect]
     Active Substance: OLAPARIB
     Indication: Ovarian cancer
  2. LYNPARZA [Suspect]
     Active Substance: OLAPARIB
  3. ONDANSETRON [Concomitant]
     Active Substance: ONDANSETRON
     Indication: Nausea
  4. BEVACIZUMAB [Concomitant]
     Active Substance: BEVACIZUMAB

REACTIONS (4)
  - Malignant neoplasm progression [Unknown]
  - Tumour marker increased [Unknown]
  - Suspected counterfeit product [Unknown]
  - Product dose omission issue [Unknown]

NARRATIVE: CASE EVENT DATE: 20241101
